FAERS Safety Report 12549602 (Version 5)
Quarter: 2017Q1

REPORT INFORMATION
  Report Type: Spontaneous
  Country: US (occurrence: US)
  Receive Date: 20160712
  Receipt Date: 20170330
  Transmission Date: 20170428
  Serious: No
  Sender: FDA-Public Use
  Company Number: US-PFIZER INC-2016337905

PATIENT
  Age: 66 Year
  Sex: Female
  Weight: 64.86 kg

DRUGS (3)
  1. XELODA [Concomitant]
     Active Substance: CAPECITABINE
     Dosage: 1500 MG, CYCLIC ( DAILY ON 2 WEEKS/ OFF 1 WK)
  2. LETROZOLE. [Concomitant]
     Active Substance: LETROZOLE
     Indication: BREAST CANCER METASTATIC
     Dosage: 2.5 MG, 1X/DAY
     Dates: start: 20160229
  3. IBRANCE [Suspect]
     Active Substance: PALBOCICLIB
     Indication: BREAST CANCER METASTATIC
     Dosage: 125 MG, 1X/DAY
     Route: 048
     Dates: start: 20160229, end: 20160629

REACTIONS (2)
  - Disease progression [Recovered/Resolved]
  - Breast cancer metastatic [Recovered/Resolved]

NARRATIVE: CASE EVENT DATE: 20160229
